FAERS Safety Report 23206761 (Version 1)
Quarter: 2023Q4

REPORT INFORMATION
  Report Type: Spontaneous
  Country: CA (occurrence: CA)
  Receive Date: 20231120
  Receipt Date: 20231120
  Transmission Date: 20240110
  Serious: Yes (Hospitalization)
  Sender: FDA-Public Use
  Company Number: CA-TEVA-2023-CA-2947832

PATIENT
  Age: 4 Year
  Sex: Male

DRUGS (1)
  1. AMOXICILLIN [Suspect]
     Active Substance: AMOXICILLIN
     Indication: Product used for unknown indication
     Route: 065

REACTIONS (5)
  - Angioedema [Unknown]
  - Erythema migrans [Unknown]
  - Polyarthritis [Unknown]
  - Rash pruritic [Unknown]
  - Serum sickness-like reaction [Unknown]
